FAERS Safety Report 5134681-4 (Version None)
Quarter: 2006Q4

REPORT INFORMATION
  Report Type: 
  Country: None (occurrence: None)
  Receive Date: 20061025
  Receipt Date: 20050126
  Transmission Date: 20070319
  Serious: Yes (Death, Other)
  Sender: FDA-Public Use
  Company Number: TOS-000675

PATIENT
  Age: 62 Year
  Sex: Male
  Weight: 87.7 kg

DRUGS (4)
  1. TOSITUMOMAB [Suspect]
     Indication: NON-HODGKIN'S LYMPHOMA
     Route: 042
     Dates: start: 20010213, end: 20010213
  2. IODINE I 131 TOSITUMOMAB [Suspect]
     Indication: NON-HODGKIN'S LYMPHOMA
     Route: 042
     Dates: start: 20010213, end: 20010213
  3. TOSITUMOMAB [Suspect]
     Route: 042
     Dates: start: 20010222, end: 20010222
  4. IODINE I 131 TOSITUMOMAB [Suspect]
     Route: 042
     Dates: end: 20010222

REACTIONS (5)
  - CEREBRAL INFARCTION [None]
  - MALIGNANT NEOPLASM PROGRESSION [None]
  - METASTASIS [None]
  - PLEURAL EFFUSION [None]
  - PROSTATE CANCER [None]
